FAERS Safety Report 18519272 (Version 1)
Quarter: 2020Q4

REPORT INFORMATION
  Report Type: Spontaneous
  Country: GB (occurrence: GB)
  Receive Date: 20201118
  Receipt Date: 20201118
  Transmission Date: 20210114
  Serious: Yes (Other)
  Sender: FDA-Public Use
  Company Number: GB-ASTRAZENECA-2020SF47018

PATIENT
  Sex: Female

DRUGS (1)
  1. FULVESTRANT. [Suspect]
     Active Substance: FULVESTRANT
     Indication: BREAST CANCER
     Dosage: 500 MILLIGRAM,CYCLE ON DAY 1, AND 15 OF CYCLE 1 FOLLOWED BY DAY 1 OF CYCLE 2 OF EVERY 28 DAY CYCLE
     Route: 030

REACTIONS (1)
  - Superior sagittal sinus thrombosis [Unknown]
